FAERS Safety Report 7402653-2 (Version None)
Quarter: 2011Q2

REPORT INFORMATION
  Report Type: 
  Country: None (occurrence: None)
  Receive Date: 20110408
  Receipt Date: 20110405
  Transmission Date: 20111010
  Serious: Yes (Other)
  Sender: FDA-Public Use
  Company Number: US-PFIZER INC-2010145006

PATIENT
  Sex: Female

DRUGS (1)
  1. CHANTIX [Suspect]
     Indication: SMOKING CESSATION THERAPY
     Dosage: ONE STARTER PACK TWO CONTINUING PACKS
     Dates: start: 20080919, end: 20090501

REACTIONS (5)
  - SUICIDAL IDEATION [None]
  - NIGHTMARE [None]
  - ANXIETY [None]
  - PARANOIA [None]
  - DEPRESSION [None]
